FAERS Safety Report 6455623-5 (Version None)
Quarter: 2009Q4

REPORT INFORMATION
  Report Type: 
  Country: None (occurrence: None)
  Receive Date: 20091125
  Receipt Date: 20090904
  Transmission Date: 20100525
  Serious: No
  Sender: FDA-Public Use
  Company Number: US-ABBOTT-09P-163-0596270-00

PATIENT
  Sex: Male
  Weight: 84.898 kg

DRUGS (8)
  1. SIMCOR [Suspect]
     Indication: BLOOD CHOLESTEROL INCREASED
     Route: 048
     Dates: start: 20090610
  2. SIMCOR [Suspect]
     Route: 048
     Dates: start: 20090709, end: 20090709
  3. LISINOPRIL [Concomitant]
     Indication: HYPERTENSION
  4. CARVEDILOL [Concomitant]
     Indication: HYPERTENSION
     Route: 048
  5. FIBER [Concomitant]
     Indication: MEDICAL DIET
     Dosage: UNKNOWN
  6. ASPIRIN [Concomitant]
     Indication: DRUG USE FOR UNKNOWN INDICATION
  7. FISH FLAX SEED BORAGE OIL COMBINATIONL [Concomitant]
     Indication: MEDICAL DIET
     Dosage: ONE IN THE MORNING AND ONE AT EVENING
  8. VITAMIN D3 [Concomitant]
     Indication: VITAMIN SUPPLEMENTATION
     Dosage: TWO IN THE MORNING AND ONE IN THE EVENING

REACTIONS (2)
  - ABDOMINAL DISCOMFORT [None]
  - DIARRHOEA [None]
